FAERS Safety Report 7973506-6 (Version None)
Quarter: 2011Q4

REPORT INFORMATION
  Report Type: 
  Country: None (occurrence: None)
  Receive Date: 20111213
  Receipt Date: 20111205
  Transmission Date: 20120403
  Serious: Yes (Congenital Anomaly)
  Sender: FDA-Public Use
  Company Number: DE-TEVA-312170GER

PATIENT
  Age: 0 Year
  Sex: Female

DRUGS (3)
  1. BERLINSULIN H BASAL [Concomitant]
     Route: 064
  2. LAMOTRIGINE [Suspect]
     Route: 064
  3. BERLINSULIN H NORMAL [Concomitant]
     Route: 064

REACTIONS (1)
  - PULMONARY VALVE INCOMPETENCE [None]
